FAERS Safety Report 14756709 (Version 2)
Quarter: 2018Q2

REPORT INFORMATION
  Report Type: Spontaneous
  Country: US (occurrence: US)
  Receive Date: 20180413
  Receipt Date: 20180416
  Transmission Date: 20180711
  Serious: No
  Sender: FDA-Public Use
  Company Number: US-PFIZER INC-2018149944

PATIENT
  Sex: Male

DRUGS (1)
  1. DESVENLAFAXINE SUCCINATE MONOHYDRATE [Suspect]
     Active Substance: DESVENLAFAXINE SUCCINATE
     Dosage: 100 MG, UNK

REACTIONS (6)
  - Dizziness [Unknown]
  - Gait disturbance [Unknown]
  - Anxiety [Unknown]
  - Tremor [Unknown]
  - Flat affect [Unknown]
  - Headache [Unknown]
